FAERS Safety Report 6892940-9 (Version None)
Quarter: 2010Q3

REPORT INFORMATION
  Report Type: 
  Country: None (occurrence: None)
  Receive Date: 20100731
  Receipt Date: 20081114
  Transmission Date: 20110219
  Serious: No
  Sender: FDA-Public Use
  Company Number: US-PFIZER INC-2008095785

PATIENT
  Sex: Male

DRUGS (3)
  1. NORVASC [Suspect]
     Dates: start: 20020101
  2. LIPITOR [Suspect]
     Dates: start: 20020101
  3. EFFEXOR [Concomitant]
     Indication: DEPRESSION

REACTIONS (5)
  - BLOOD PRESSURE INADEQUATELY CONTROLLED [None]
  - DIZZINESS [None]
  - DYSPEPSIA [None]
  - ELECTROLYTE IMBALANCE [None]
  - FEELING ABNORMAL [None]
